FAERS Safety Report 8838515 (Version 1)
Quarter: 2012Q4

REPORT INFORMATION
  Report Type: 
  Country: CA (occurrence: CA)
  Receive Date: 20121012
  Receipt Date: 20121012
  Transmission Date: 20130627
  Serious: Yes (Other)
  Sender: FDA-Public Use
  Company Number: CA-NAPPMUNDI-CAN-2012-0003271

PATIENT
  Age: 24 Year
  Sex: Female

DRUGS (5)
  1. OXYCONTIN TABLETS [Suspect]
     Indication: PRODUCT USED FOR UNKNOWN INDICATION
     Dosage: at least 1800 mg, daily
     Route: 042
  2. OXYCONTIN TABLETS [Suspect]
     Indication: ANXIETY
  3. COCAINE [Suspect]
  4. NICOTINE [Suspect]
     Indication: PRODUCT USED FOR UNKNOWN INDICATION
     Dosage: UNK
     Route: 055
  5. ALCOHOL [Suspect]
     Indication: PRODUCT USED FOR UNKNOWN INDICATION
     Dosage: UNK
     Route: 048

REACTIONS (8)
  - Drug dependence [Unknown]
  - Substance abuse [Unknown]
  - Suicidal behaviour [Unknown]
  - Drug withdrawal syndrome [Unknown]
  - Vein disorder [Unknown]
  - Social avoidant behaviour [Unknown]
  - Mood altered [Unknown]
  - Hyperhidrosis [Unknown]
